FAERS Safety Report 13610143 (Version 1)
Quarter: 2017Q2

REPORT INFORMATION
  Report Type: Spontaneous
  Country: US (occurrence: US)
  Receive Date: 20170604
  Receipt Date: 20170604
  Transmission Date: 20170830
  Serious: Yes (Death, Life-Threatening)
  Sender: FDA-Public Use
  Company Number: US-B.I. PHARMACEUTICALS,INC./RIDGEFIELD-2017-BI-030573

PATIENT
  Age: 71 Year
  Sex: Male

DRUGS (1)
  1. PRADAXA [Suspect]
     Active Substance: DABIGATRAN ETEXILATE MESYLATE
     Indication: ATRIAL FIBRILLATION
     Route: 065

REACTIONS (7)
  - Acute kidney injury [Fatal]
  - Varices oesophageal [Fatal]
  - Haemorrhage [Fatal]
  - Nephropathy [Fatal]
  - Hepatorenal syndrome [Fatal]
  - Coagulopathy [Fatal]
  - Toxicity to various agents [Fatal]
